FAERS Safety Report 6659596-1 (Version None)
Quarter: 2010Q1

REPORT INFORMATION
  Report Type: 
  Country: None (occurrence: None)
  Receive Date: 20100330
  Receipt Date: 20100322
  Transmission Date: 20100710
  Serious: Yes (Other)
  Sender: FDA-Public Use
  Company Number: CN-WYE-G05237809

PATIENT
  Sex: Male
  Weight: 55 kg

DRUGS (3)
  1. MOROCTOCOG ALFA AF OSA [Suspect]
     Indication: FACTOR VIII DEFICIENCY
     Dosage: 2535.0IU GIVEN FOR INITIAL RECOVERY
     Route: 040
     Dates: start: 20090421, end: 20090421
  2. MOROCTOCOG ALFA AF OSA [Suspect]
     Dosage: 13689.0IU TOTALLY GIVEN ON-DEMAND
     Route: 040
     Dates: start: 20090504, end: 20091014
  3. MOROCTOCOG ALFA AF OSA [Suspect]
     Dosage: 2535.0IU GIVEN FOR FINAL RECOVERY
     Route: 040
     Dates: start: 20091022, end: 20091022

REACTIONS (1)
  - FACTOR VIII INHIBITION [None]
